FAERS Safety Report 19285534 (Version 22)
Quarter: 2023Q1

REPORT INFORMATION
  Report Type: Report from Study
  Country: AR (occurrence: AR)
  Receive Date: 20210521
  Receipt Date: 20230310
  Transmission Date: 20230417
  Serious: Yes (Hospitalization, Other)
  Sender: FDA-Public Use
  Company Number: AR-TAKEDA-2021TUS032338

PATIENT
  Age: 13 Year
  Sex: Male
  Weight: 28.98 kg

DRUGS (13)
  1. IDURSULFASE [Suspect]
     Active Substance: IDURSULFASE
     Indication: Mucopolysaccharidosis II
     Dosage: UNK UNK, 1/WEEK
     Route: 042
  2. IDURSULFASE [Suspect]
     Active Substance: IDURSULFASE
     Dosage: UNK UNK, 1/WEEK
     Route: 042
  3. IDURSULFASE [Suspect]
     Active Substance: IDURSULFASE
     Dosage: 3 DOSAGE FORM, 1/WEEK
     Route: 050
     Dates: start: 20151103
  4. IDURSULFASE [Suspect]
     Active Substance: IDURSULFASE
     Dosage: 3 DOSAGE FORM, 1/WEEK
     Route: 042
     Dates: start: 20151103
  5. IDURSULFASE [Suspect]
     Active Substance: IDURSULFASE
     Dosage: 3 DOSAGE FORM, 1/WEEK
     Route: 042
     Dates: start: 20151103
  6. IDURSULFASE [Suspect]
     Active Substance: IDURSULFASE
     Dosage: 3 DOSAGE FORM, 1/WEEK
     Route: 042
     Dates: start: 20151103
  7. IDURSULFASE [Suspect]
     Active Substance: IDURSULFASE
     Dosage: 3 DOSAGE FORM, 1/WEEK
     Route: 042
     Dates: start: 20151103
  8. IDURSULFASE [Suspect]
     Active Substance: IDURSULFASE
     Dosage: 3 DOSAGE FORM, 1/WEEK
     Route: 042
     Dates: start: 20151103
  9. IDURSULFASE [Suspect]
     Active Substance: IDURSULFASE
     Dosage: 3 DOSAGE FORM, 1/WEEK
     Route: 042
     Dates: start: 20151103
  10. IDURSULFASE [Suspect]
     Active Substance: IDURSULFASE
     Dosage: 0.5 MILLIGRAM/KILOGRAM, 1/WEEK
     Route: 042
     Dates: start: 20180504
  11. IDURSULFASE [Suspect]
     Active Substance: IDURSULFASE
     Dosage: 3 DOSAGE FORM, 1/WEEK
     Route: 042
     Dates: start: 20180504
  12. PFIZER-BIONTECH COVID-19 VACCINE [Suspect]
     Active Substance: TOZINAMERAN
     Indication: Product used for unknown indication
     Dosage: UNK
     Route: 065
     Dates: start: 20211108
  13. CLOBAZAM [Concomitant]
     Active Substance: CLOBAZAM
     Dosage: UNK, Q12H
     Route: 048

REACTIONS (29)
  - Hypothermia [Recovered/Resolved]
  - Oxygen saturation decreased [Recovered/Resolved]
  - International normalised ratio increased [Recovered/Resolved]
  - Disease progression [Unknown]
  - Seizure [Recovered/Resolved]
  - Cellulitis [Not Recovered/Not Resolved]
  - Choking [Recovering/Resolving]
  - Tonic convulsion [Recovered/Resolved]
  - Pneumonia [Recovered/Resolved]
  - Prothrombin time shortened [Unknown]
  - Sleep deficit [Unknown]
  - Dyskinesia [Recovered/Resolved]
  - Renal function test abnormal [Unknown]
  - Tooth abscess [Recovering/Resolving]
  - Nasopharyngitis [Recovered/Resolved]
  - Musculoskeletal stiffness [Recovered/Resolved]
  - Secretion discharge [Recovering/Resolving]
  - Respiratory disorder [Not Recovered/Not Resolved]
  - Bronchitis [Recovering/Resolving]
  - Petechiae [Recovering/Resolving]
  - Crying [Recovered/Resolved]
  - Productive cough [Recovering/Resolving]
  - Eyelid oedema [Recovering/Resolving]
  - Eating disorder [Unknown]
  - International normalised ratio decreased [Unknown]
  - Tremor [Recovered/Resolved]
  - Cough [Recovering/Resolving]
  - Oedema peripheral [Recovering/Resolving]
  - Pyrexia [Recovering/Resolving]

NARRATIVE: CASE EVENT DATE: 20210514
